FAERS Safety Report 24432352 (Version 1)
Quarter: 2024Q4

REPORT INFORMATION
  Report Type: Spontaneous
  Country: US (occurrence: US)
  Receive Date: 20241014
  Receipt Date: 20241014
  Transmission Date: 20250115
  Serious: No
  Sender: TEVA
  Company Number: US-TEVA-VS-3247284

PATIENT
  Age: 77 Year
  Sex: Female

DRUGS (1)
  1. DIAZEPAM [Suspect]
     Active Substance: DIAZEPAM
     Indication: Anxiety
     Dosage: 2 TABLETS A DAY
     Route: 065
     Dates: start: 2024

REACTIONS (7)
  - Dizziness [Unknown]
  - Dry mouth [Unknown]
  - Incorrect dose administered [Unknown]
  - Fall [Unknown]
  - Dysstasia [Unknown]
  - Drug ineffective [Unknown]
  - Tinnitus [Unknown]

NARRATIVE: CASE EVENT DATE: 20240901
